FAERS Safety Report 11873053 (Version 2)
Quarter: 2016Q1

REPORT INFORMATION
  Report Type: Spontaneous
  Country: US (occurrence: US)
  Receive Date: 20151228
  Receipt Date: 20160212
  Transmission Date: 20160526
  Serious: Yes (Death, Hospitalization, Other)
  Sender: FDA-Public Use
  Company Number: US-JNJFOC-20151220097

PATIENT
  Age: 75 Year
  Sex: Male
  Weight: 99.79 kg

DRUGS (3)
  1. XARELTO [Suspect]
     Active Substance: RIVAROXABAN
     Indication: ATRIAL FIBRILLATION
     Route: 048
     Dates: start: 201502, end: 201507
  2. SYNTHROID [Concomitant]
     Active Substance: LEVOTHYROXINE SODIUM
     Indication: THYROID DISORDER
     Route: 065
  3. XARELTO [Suspect]
     Active Substance: RIVAROXABAN
     Indication: CEREBROVASCULAR ACCIDENT PROPHYLAXIS
     Route: 048
     Dates: start: 201502, end: 201507

REACTIONS (7)
  - Treatment noncompliance [Unknown]
  - Sepsis [Unknown]
  - Cholecystectomy [Unknown]
  - Gallbladder injury [Unknown]
  - Malaise [Unknown]
  - Urinary incontinence [Unknown]
  - Haematemesis [Fatal]

NARRATIVE: CASE EVENT DATE: 2015
